FAERS Safety Report 13323544 (Version 2)
Quarter: 2017Q1

REPORT INFORMATION
  Report Type: Spontaneous
  Country: US (occurrence: US)
  Receive Date: 20170310
  Receipt Date: 20170329
  Transmission Date: 20170428
  Serious: Yes (Hospitalization, Other)
  Sender: FDA-Public Use
  Company Number: US-SHIRE-US201704598

PATIENT
  Age: 40 Year
  Sex: Female
  Weight: 54.42 kg

DRUGS (4)
  1. VERAMYST [Concomitant]
     Active Substance: FLUTICASONE FUROATE
     Indication: HYPERSENSITIVITY
     Dosage: UNK, UNKNOWN
     Route: 045
  2. ADDERALL [Concomitant]
     Active Substance: AMPHETAMINE ASPARTATE\AMPHETAMINE SULFATE\DEXTROAMPHETAMINE SACCHARATE\DEXTROAMPHETAMINE SULFATE
     Indication: ADVERSE EVENT
     Dosage: 15 MG, UNKNOWN
     Route: 065
  3. VYVANSE [Suspect]
     Active Substance: LISDEXAMFETAMINE DIMESYLATE
     Indication: ATTENTION DEFICIT/HYPERACTIVITY DISORDER
     Dosage: 50 MG, 1X/DAY:QD
     Route: 048
     Dates: start: 2007
  4. VITAMINS                           /00067501/ [Concomitant]
     Active Substance: VITAMINS
     Indication: SUPPLEMENTATION THERAPY
     Dosage: UNK, UNKNOWN
     Route: 065

REACTIONS (6)
  - Dyspnoea [Unknown]
  - Chest pain [Unknown]
  - Adverse event [Unknown]
  - Dizziness [Unknown]
  - Vasospasm [Unknown]
  - Nausea [Unknown]

NARRATIVE: CASE EVENT DATE: 2009
